FAERS Safety Report 4592636-2 (Version None)
Quarter: 2005Q1

REPORT INFORMATION
  Report Type: 
  Country: None (occurrence: None)
  Receive Date: 20050222
  Receipt Date: 20050209
  Transmission Date: 20050727
  Serious: Yes (Other)
  Sender: FDA-Public Use
  Company Number: 2005032389

PATIENT
  Sex: Female

DRUGS (2)
  1. ALDACTONE [Suspect]
     Indication: HYPERALDOSTERONISM
     Dosage: 50 MG (25 MG, BID), ORAL
     Route: 048
  2. POTASSIUM TABLETS EFFERVESCENT (POTASSIUM BICARBONATE, POTASSIUM BITAR [Concomitant]

REACTIONS (2)
  - SUPRAVENTRICULAR EXTRASYSTOLES [None]
  - VENTRICULAR EXTRASYSTOLES [None]
